FAERS Safety Report 25406941 (Version 1)
Quarter: 2025Q2

REPORT INFORMATION
  Report Type: Report from Study
  Country: US (occurrence: US)
  Receive Date: 20250606
  Receipt Date: 20250606
  Transmission Date: 20250717
  Serious: Yes (Other)
  Sender: AMARIN
  Company Number: US-Amarin Pharma  Inc-2025AMR000413

PATIENT
  Age: 73 Year
  Sex: Male

DRUGS (1)
  1. VASCEPA [Suspect]
     Active Substance: ICOSAPENT ETHYL
     Indication: Product used for unknown indication
     Dates: start: 20240321

REACTIONS (1)
  - Cerebrovascular accident [Unknown]
